FAERS Safety Report 9664394 (Version 1)
Quarter: 2013Q4

REPORT INFORMATION
  Report Type: Spontaneous
  Country: US (occurrence: None)
  Receive Date: 20131030
  Receipt Date: 20131030
  Transmission Date: 20140711
  Serious: Yes (Other)
  Sender: FDA-Public Use
  Company Number: None

PATIENT
  Age: 41 Year
  Sex: Female
  Weight: 50.2 kg

DRUGS (2)
  1. TOBI PODHALER [Suspect]
     Indication: CYSTIC FIBROSIS
     Dosage: 28 MG CAPSULES X 4, TWICE DAILY, INHALER (28 DAYS ON/28 DAYS OFF)
     Route: 055
     Dates: start: 20130804, end: 20130831
  2. TOBI PODHALER [Suspect]
     Indication: PSEUDOMONAS INFECTION
     Dosage: 28 MG CAPSULES X 4, TWICE DAILY, INHALER (28 DAYS ON/28 DAYS OFF)
     Route: 055
     Dates: start: 20130804, end: 20130831

REACTIONS (7)
  - Dyspnoea [None]
  - Condition aggravated [None]
  - No therapeutic response [None]
  - Pneumothorax [None]
  - Cough [None]
  - Sputum increased [None]
  - Product dosage form issue [None]
